FAERS Safety Report 4366911-0 (Version None)
Quarter: 2004Q2

REPORT INFORMATION
  Report Type: 
  Country: None (occurrence: None)
  Receive Date: 20040524
  Receipt Date: 20040510
  Transmission Date: 20050107
  Serious: Yes (Other)
  Sender: FDA-Public Use
  Company Number: 194817

PATIENT
  Sex: Female
  Weight: 3.6288 kg

DRUGS (6)
  1. AVONEX [Suspect]
     Indication: MULTIPLE SCLEROSIS
     Dosage: 30 MCG QW IM
     Route: 030
     Dates: start: 20010415, end: 20030823
  2. CELEXA [Concomitant]
  3. ZIAC [Concomitant]
  4. SYNTHROID [Concomitant]
  5. PAXIL [Concomitant]
  6. PROCARDIA [Concomitant]

REACTIONS (3)
  - APGAR SCORE LOW [None]
  - DRUG EXPOSURE DURING PREGNANCY [None]
  - NEONATAL APNOEIC ATTACK [None]
